FAERS Safety Report 16234965 (Version 1)
Quarter: 2019Q2

REPORT INFORMATION
  Report Type: Spontaneous
  Country: US (occurrence: US)
  Receive Date: 20190424
  Receipt Date: 20190424
  Transmission Date: 20190711
  Serious: No
  Sender: FDA-Public Use
  Company Number: US-TEVA-2019-US-1041391

PATIENT
  Age: 44 Year
  Sex: Male

DRUGS (1)
  1. BUPRENORPHINE, 20 MCG/HR [Suspect]
     Active Substance: BUPRENORPHINE
     Dosage: 20 MCG/HR

REACTIONS (2)
  - Withdrawal syndrome [Unknown]
  - Device leakage [Unknown]

NARRATIVE: CASE EVENT DATE: 20190414
